FAERS Safety Report 9064500 (Version 4)
Quarter: 2013Q1

REPORT INFORMATION
  Report Type: Spontaneous
  Country: US (occurrence: US)
  Receive Date: 20130214
  Receipt Date: 20130308
  Transmission Date: 20140127
  Serious: No
  Sender: FDA-Public Use
  Company Number: US-009507513-1302USA003846

PATIENT
  Age: 19 None
  Sex: Female
  Weight: 54.42 kg

DRUGS (2)
  1. NEXPLANON [Suspect]
     Indication: CONTRACEPTION
     Dosage: 1 68 MG ROD UP TO 3 YEARS
     Dates: start: 20120818
  2. VITAMINS (UNSPECIFIED) [Concomitant]

REACTIONS (3)
  - Pain in extremity [Unknown]
  - Implant site pain [Unknown]
  - Device breakage [Unknown]
